FAERS Safety Report 22880889 (Version 2)
Quarter: 2023Q4

REPORT INFORMATION
  Report Type: Report from Study
  Country: US (occurrence: US)
  Receive Date: 20230830
  Receipt Date: 20231009
  Transmission Date: 20240110
  Serious: Yes (Other)
  Sender: FDA-Public Use
  Company Number: US-ABBVIE-5385902

PATIENT
  Sex: Female
  Weight: 59.42 kg

DRUGS (1)
  1. HUMIRA [Suspect]
     Active Substance: ADALIMUMAB
     Indication: Psoriatic arthropathy
     Dosage: FORM STRENGTH: 40
     Route: 058
     Dates: start: 2020, end: 202308

REACTIONS (5)
  - Neuromyelitis optica spectrum disorder [Not Recovered/Not Resolved]
  - General symptom [Not Recovered/Not Resolved]
  - Anti-aquaporin-4 antibody positive [Not Recovered/Not Resolved]
  - Spinal disorder [Not Recovered/Not Resolved]
  - Cerebral thrombosis [Recovered/Resolved]

NARRATIVE: CASE EVENT DATE: 20230101
